FAERS Safety Report 22788933 (Version 4)
Quarter: 2024Q1

REPORT INFORMATION
  Report Type: Spontaneous
  Country: US (occurrence: US)
  Receive Date: 20230804
  Receipt Date: 20240131
  Transmission Date: 20240409
  Serious: Yes (Other)
  Sender: FDA-Public Use
  Company Number: US-BRISTOL-MYERS SQUIBB COMPANY-2023-109814

PATIENT
  Age: 80 Year
  Sex: Female
  Weight: 81.65 kg

DRUGS (2)
  1. LENALIDOMIDE [Suspect]
     Active Substance: LENALIDOMIDE
     Indication: Plasma cell myeloma
     Route: 048
     Dates: start: 20221030
  2. LENALIDOMIDE [Suspect]
     Active Substance: LENALIDOMIDE
     Dosage: 1 CAPSULE DAILY FOR 3 WEEKS ON AND 1 WEEK OFF
     Route: 048

REACTIONS (9)
  - Diarrhoea [Not Recovered/Not Resolved]
  - Pharyngeal haemorrhage [Recovered/Resolved]
  - Haemoptysis [Recovered/Resolved]
  - Drug ineffective [Unknown]
  - Illness [Unknown]
  - Thrombosis [Unknown]
  - Drug intolerance [Unknown]
  - Anal incontinence [Not Recovered/Not Resolved]
  - Constipation [Recovering/Resolving]

NARRATIVE: CASE EVENT DATE: 20221001
